FAERS Safety Report 14418039 (Version 1)
Quarter: 2018Q1

REPORT INFORMATION
  Report Type: Report from Study
  Country: US (occurrence: US)
  Receive Date: 20180122
  Receipt Date: 20180122
  Transmission Date: 20180509
  Serious: No
  Sender: FDA-Public Use
  Company Number: PHEH2018US002088

PATIENT
  Sex: Female
  Weight: 81 kg

DRUGS (1)
  1. COSENTYX [Suspect]
     Active Substance: SECUKINUMAB
     Indication: PSORIATIC ARTHROPATHY
     Dosage: 150 MG, Q2W
     Route: 058

REACTIONS (5)
  - Bronchitis [Unknown]
  - Malaise [Unknown]
  - Upper respiratory tract infection [Unknown]
  - Tongue disorder [Unknown]
  - Oral pain [Unknown]
